FAERS Safety Report 7516209-4 (Version None)
Quarter: 2011Q2

REPORT INFORMATION
  Report Type: 
  Country: None (occurrence: None)
  Receive Date: 20110520
  Receipt Date: 20110517
  Transmission Date: 20111010
  Serious: Yes (Death, Hospitalization)
  Sender: FDA-Public Use
  Company Number: UTC-007232

PATIENT
  Age: 61 Year
  Sex: Female
  Weight: 56.8 kg

DRUGS (2)
  1. TYVASO [Suspect]
     Indication: PULMONARY ARTERIAL HYPERTENSION
     Dosage: 120 MCG (30 MCG,4 IN 1 D), INHALATION
     Route: 055
     Dates: start: 20100430
  2. REVATIO [Concomitant]

REACTIONS (1)
  - DEATH [None]
